FAERS Safety Report 8309242-6 (Version None)
Quarter: 2012Q2

REPORT INFORMATION
  Report Type: 
  Country: None (occurrence: None)
  Receive Date: 20120424
  Receipt Date: 20120417
  Transmission Date: 20120825
  Serious: Yes (Life-Threatening)
  Sender: FDA-Public Use
  Company Number: US-MERCK-1204USA02602

PATIENT
  Age: 70 Year
  Sex: Female

DRUGS (1)
  1. INVANZ [Suspect]
     Indication: ABDOMINAL OPERATION
     Route: 042

REACTIONS (1)
  - CLOSTRIDIAL INFECTION [None]
